FAERS Safety Report 23836554 (Version 1)
Quarter: 2024Q2

REPORT INFORMATION
  Report Type: Spontaneous
  Country: US (occurrence: US)
  Receive Date: 20240509
  Receipt Date: 20240509
  Transmission Date: 20240715
  Serious: Yes (Death, Other)
  Sender: FDA-Public Use
  Company Number: US-MYLANLABS-2024M1041268

PATIENT
  Sex: Male
  Weight: 106.14 kg

DRUGS (1)
  1. VALSARTAN [Suspect]
     Active Substance: VALSARTAN
     Indication: Hypertension
     Dosage: 80 MILLIGRAM
     Route: 065
     Dates: start: 20181012, end: 20181111

REACTIONS (5)
  - Colon cancer metastatic [Fatal]
  - Jaundice [Fatal]
  - Acidosis [Fatal]
  - Hepatic encephalopathy [Fatal]
  - Acute respiratory failure [Fatal]
